FAERS Safety Report 22140953 (Version 5)
Quarter: 2024Q3

REPORT INFORMATION
  Report Type: Report from Study
  Country: JP (occurrence: JP)
  Receive Date: 20230327
  Receipt Date: 20240702
  Transmission Date: 20241017
  Serious: Yes (Hospitalization, Other)
  Sender: ARGENX BVBA
  Company Number: JP-ARGENX-2023-ARGX-JP000917

PATIENT

DRUGS (14)
  1. EFGARTIGIMOD ALFA [Suspect]
     Active Substance: EFGARTIGIMOD ALFA
     Indication: Myasthenia gravis
     Dosage: 450 MG
     Route: 042
     Dates: start: 20220620, end: 20220711
  2. EFGARTIGIMOD ALFA [Suspect]
     Active Substance: EFGARTIGIMOD ALFA
     Dosage: 350 MG
     Route: 042
     Dates: start: 20221205, end: 20221219
  3. EFGARTIGIMOD ALFA [Suspect]
     Active Substance: EFGARTIGIMOD ALFA
     Dosage: 350 MG
     Route: 042
     Dates: start: 20230508, end: 20230515
  4. CEFTRIAXONE SODIUM [Suspect]
     Active Substance: CEFTRIAXONE SODIUM
     Indication: Pneumonia
     Dosage: 2 G/DAY
     Route: 042
     Dates: start: 20221228, end: 20221230
  5. CEFTRIAXONE SODIUM [Suspect]
     Active Substance: CEFTRIAXONE SODIUM
     Dosage: 2 G/DAY
     Route: 042
     Dates: start: 20230529, end: 20230531
  6. PREDONINE [Concomitant]
     Active Substance: PREDNISOLONE
     Indication: Myasthenia gravis
     Dosage: 14 MG
     Route: 048
     Dates: start: 20220523, end: 20220726
  7. PREDONINE [Concomitant]
     Active Substance: PREDNISOLONE
     Dosage: 10 MG
     Route: 048
     Dates: start: 20220727, end: 20221227
  8. PREDONINE [Concomitant]
     Active Substance: PREDNISOLONE
     Dosage: 8 MG
     Route: 048
     Dates: start: 20221228, end: 20230406
  9. PREDONINE [Concomitant]
     Active Substance: PREDNISOLONE
     Dosage: 7 MG
     Route: 048
     Dates: start: 20230407, end: 20230618
  10. PREDONINE [Concomitant]
     Active Substance: PREDNISOLONE
     Dosage: 6 MG
     Route: 048
     Dates: start: 20230619
  11. MESTINON [Concomitant]
     Active Substance: PYRIDOSTIGMINE BROMIDE
     Indication: Myasthenia gravis
     Dosage: 1 DF, BID, AFTER BREAKFAST AND DINNER
     Route: 048
     Dates: start: 20220523, end: 20220920
  12. MESTINON [Concomitant]
     Active Substance: PYRIDOSTIGMINE BROMIDE
     Dosage: 1 DF, DAILY, AFTER BREAKFAST
     Route: 048
     Dates: start: 20220921, end: 20230308
  13. TACROLIMUS [Concomitant]
     Active Substance: TACROLIMUS
     Indication: Myasthenia gravis
     Dosage: 1.5 MG
     Route: 048
     Dates: start: 20230407
  14. FLUCONAZOLE [Concomitant]
     Active Substance: FLUCONAZOLE
     Indication: Fungal infection
     Dosage: 100 MG/DAY
     Route: 048
     Dates: end: 20220920

REACTIONS (8)
  - Pneumonia [Recovered/Resolved]
  - Pneumonia [Recovered/Resolved]
  - Clostridium difficile colitis [Recovered/Resolved]
  - Bacteraemia [Recovering/Resolving]
  - Weight decreased [Not Recovered/Not Resolved]
  - Myasthenia gravis [Recovering/Resolving]
  - Myasthenia gravis [Recovering/Resolving]
  - Product dose omission issue [Unknown]

NARRATIVE: CASE EVENT DATE: 20220726
